FAERS Safety Report 7361711-1 (Version None)
Quarter: 2011Q1

REPORT INFORMATION
  Report Type: 
  Country: None (occurrence: None)
  Receive Date: 20110318
  Receipt Date: 20100517
  Transmission Date: 20110831
  Serious: Yes (Other)
  Sender: FDA-Public Use
  Company Number: US-PFIZER INC-2010061446

PATIENT
  Sex: Female
  Weight: 90.7 kg

DRUGS (2)
  1. ROCEPHIN [Concomitant]
  2. UNASYN [Suspect]
     Indication: ABSCESS
     Dosage: 3 G, 4X/DAY
     Route: 042
     Dates: start: 20100418, end: 20100419

REACTIONS (1)
  - RASH MACULAR [None]
